FAERS Safety Report 8028705-4 (Version None)
Quarter: 2012Q1

REPORT INFORMATION
  Report Type: 
  Country: None (occurrence: None)
  Receive Date: 20120104
  Receipt Date: 20111229
  Transmission Date: 20120608
  Serious: Yes (Hospitalization, Other)
  Sender: FDA-Public Use
  Company Number: AUR-APL-2011-05656

PATIENT
  Age: 9 Year
  Sex: Female
  Weight: 17.2 kg

DRUGS (7)
  1. EPOGEN [Concomitant]
  2. LABETALOL HCL [Concomitant]
  3. AZATHIOPRINE [Concomitant]
  4. CALCITRIOL [Concomitant]
  5. ATORVASTATIN [Concomitant]
  6. AMLODIPINE [Suspect]
     Indication: HYPERTENSION
     Dosage: (7.5 MG,1 D),ORAL ; (12.5 MG,1 D)
     Route: 048
  7. BUDESONIDE [Suspect]
     Indication: CROHN'S DISEASE
     Dosage: (3 MG,1 D)

REACTIONS (6)
  - PROTEIN TOTAL DECREASED [None]
  - HYPOKALAEMIA [None]
  - GINGIVAL HYPERPLASIA [None]
  - BLOOD ALBUMIN DECREASED [None]
  - FAILURE TO THRIVE [None]
  - WEIGHT GAIN POOR [None]
